FAERS Safety Report 6600196-7 (Version None)
Quarter: 2010Q1

REPORT INFORMATION
  Report Type: 
  Country: None (occurrence: None)
  Receive Date: 20100224
  Receipt Date: 20100216
  Transmission Date: 20100710
  Serious: Yes (Life-Threatening, Hospitalization)
  Sender: FDA-Public Use
  Company Number: B0634478A

PATIENT
  Age: 45 Year
  Sex: Female

DRUGS (2)
  1. LAPATINIB [Suspect]
     Dosage: 1250MG PER DAY
     Route: 048
  2. XELODA [Concomitant]

REACTIONS (5)
  - CARDIAC ARREST [None]
  - EJECTION FRACTION DECREASED [None]
  - ELECTROCARDIOGRAM QT PROLONGED [None]
  - SEPSIS [None]
  - VENTRICULAR FIBRILLATION [None]
